FAERS Safety Report 7154233-4 (Version None)
Quarter: 2010Q4

REPORT INFORMATION
  Report Type: 
  Country: None (occurrence: None)
  Receive Date: 20101213
  Receipt Date: 20101201
  Transmission Date: 20110411
  Serious: Yes (Hospitalization)
  Sender: FDA-Public Use
  Company Number: JP-ROCHE-743268

PATIENT
  Sex: Female
  Weight: 50 kg

DRUGS (14)
  1. TOCILIZUMAB [Suspect]
     Indication: RHEUMATOID ARTHRITIS
     Dosage: DOSE FORM: INJECTION
     Route: 041
     Dates: start: 20081108, end: 20081108
  2. TOCILIZUMAB [Suspect]
     Dosage: DOSE FORM: INJECTION
     Route: 041
     Dates: start: 20081206, end: 20081206
  3. TOCILIZUMAB [Suspect]
     Dosage: DOSE FORM: INJECTION
     Route: 041
     Dates: start: 20090110, end: 20090110
  4. TOCILIZUMAB [Suspect]
     Dosage: DOSE FORM: INJECTION
     Route: 041
     Dates: start: 20090207, end: 20090207
  5. TOCILIZUMAB [Suspect]
     Dosage: DOSE FORM: INJECTION
     Route: 041
     Dates: start: 20090307, end: 20090307
  6. TOCILIZUMAB [Suspect]
     Dosage: DOSE FORM: INJECTION
     Route: 041
     Dates: start: 20090404, end: 20090404
  7. TOCILIZUMAB [Suspect]
     Dosage: DOSE FORM: INJECTION
     Route: 041
     Dates: start: 20090502, end: 20090502
  8. TOCILIZUMAB [Suspect]
     Dosage: DOSE FORM: INJECTION
     Route: 041
     Dates: start: 20090530, end: 20090530
  9. TOCILIZUMAB [Suspect]
     Route: 041
     Dates: start: 20090627, end: 20090627
  10. TOCILIZUMAB [Suspect]
     Route: 041
     Dates: start: 20091024, end: 20101013
  11. RHEUMATREX [Suspect]
     Indication: RHEUMATOID ARTHRITIS
     Route: 048
     Dates: end: 20081101
  12. RHEUMATREX [Suspect]
     Route: 048
     Dates: start: 20090725, end: 20091023
  13. LOXONIN [Concomitant]
     Dosage: DOSE FORM: PERORAL AGENT
     Route: 048
     Dates: end: 20101111
  14. MUCOSTA [Concomitant]
     Dosage: DOSE FORM: PERORAL AGENT
     Route: 048

REACTIONS (3)
  - CHOLANGITIS [None]
  - PORTAL VEIN THROMBOSIS [None]
  - PUSTULAR PSORIASIS [None]
